FAERS Safety Report 7107946-4 (Version None)
Quarter: 2010Q4

REPORT INFORMATION
  Report Type: 
  Country: None (occurrence: None)
  Receive Date: 20101117
  Receipt Date: 20101111
  Transmission Date: 20110411
  Serious: Yes (Death)
  Sender: FDA-Public Use
  Company Number: CN-GENZYME-FLUD-1000376

PATIENT
  Sex: Male
  Weight: 58 kg

DRUGS (3)
  1. FLUDARA [Suspect]
     Indication: ACUTE MYELOID LEUKAEMIA
     Dosage: 30 MG/M2, QD
     Route: 042
     Dates: start: 20100722, end: 20100917
  2. ARA-C [Suspect]
     Indication: ACUTE MYELOID LEUKAEMIA
     Dosage: 2 G/M2, QD
     Route: 065
     Dates: start: 20100722, end: 20100917
  3. NEUPOGEN [Suspect]
     Indication: ACUTE MYELOID LEUKAEMIA
     Dosage: 200 MCG/M2, QD
     Route: 065
     Dates: start: 20100722, end: 20100917

REACTIONS (1)
  - DEATH [None]
